FAERS Safety Report 22371278 (Version 1)
Quarter: 2023Q2

REPORT INFORMATION
  Report Type: Spontaneous
  Country: JP (occurrence: JP)
  Receive Date: 20230526
  Receipt Date: 20230526
  Transmission Date: 20230721
  Serious: Yes (Hospitalization)
  Sender: FDA-Public Use
  Company Number: JP-KYOWAKIRIN-2023AKK007368

PATIENT
  Age: 7 Decade
  Sex: Male

DRUGS (6)
  1. PEGFILGRASTIM [Suspect]
     Active Substance: PEGFILGRASTIM
     Indication: Product used for unknown indication
     Dosage: THE 4TH CYCLE, ONCE PER CYCLE
     Route: 058
     Dates: start: 20230520
  2. PEGFILGRASTIM [Suspect]
     Active Substance: PEGFILGRASTIM
     Dosage: FROM 1ST TO 3RD CYCLE,ONCE PER CYCLE
     Route: 058
  3. ETOPOSIDE [Suspect]
     Active Substance: ETOPOSIDE
     Indication: Lung neoplasm malignant
     Dosage: THE 4TH CYCLE
     Route: 065
     Dates: start: 20230516
  4. ETOPOSIDE [Suspect]
     Active Substance: ETOPOSIDE
     Dosage: FROM 1ST TO 3RD CYCLE
     Route: 065
  5. CISPLATIN [Concomitant]
     Active Substance: CISPLATIN
     Indication: Lung neoplasm malignant
     Dosage: THE 4TH CYCLE
     Route: 065
     Dates: start: 20230516
  6. CISPLATIN [Concomitant]
     Active Substance: CISPLATIN
     Dosage: FROM 1ST TO 3RD CYCLE
     Route: 065

REACTIONS (3)
  - Dysstasia [Unknown]
  - White blood cell count increased [Unknown]
  - Neutrophil count increased [Unknown]
